FAERS Safety Report 9514506 (Version 1)
Quarter: 2013Q3

REPORT INFORMATION
  Report Type: Spontaneous
  Country: JP (occurrence: JP)
  Receive Date: 20130911
  Receipt Date: 20130911
  Transmission Date: 20140515
  Serious: Yes (Other)
  Sender: FDA-Public Use
  Company Number: JP-ROCHE-1269438

PATIENT
  Age: 66 Year
  Sex: Male

DRUGS (10)
  1. AVASTIN [Suspect]
     Indication: COLON CANCER METASTATIC
     Route: 041
  2. AVASTIN [Suspect]
     Indication: COLON CANCER METASTATIC
     Route: 041
     Dates: end: 201003
  3. ELPLAT [Suspect]
     Indication: COLON CANCER METASTATIC
     Route: 041
  4. 5-FU [Concomitant]
     Indication: COLON CANCER METASTATIC
     Route: 040
  5. 5-FU [Concomitant]
     Indication: COLON CANCER METASTATIC
     Route: 041
  6. 5-FU [Concomitant]
     Indication: COLON CANCER METASTATIC
     Route: 040
     Dates: end: 201003
  7. 5-FU [Concomitant]
     Indication: COLON CANCER METASTATIC
     Route: 041
     Dates: end: 201003
  8. CALCIUM LEVOFOLINATE [Concomitant]
     Indication: COLON CANCER METASTATIC
     Route: 041
  9. CALCIUM LEVOFOLINATE [Concomitant]
     Indication: COLON CANCER METASTATIC
     Route: 041
     Dates: end: 201003
  10. IRINOTECAN HYDROCHLORIDE [Concomitant]
     Indication: COLON CANCER METASTATIC
     Route: 041
     Dates: end: 201003

REACTIONS (5)
  - Pruritus allergic [Unknown]
  - Flushing [Unknown]
  - Blood pressure inadequately controlled [Unknown]
  - Angina pectoris [Not Recovered/Not Resolved]
  - Proteinuria [Not Recovered/Not Resolved]
